FAERS Safety Report 15314738 (Version 2)
Quarter: 2018Q3

REPORT INFORMATION
  Report Type: Spontaneous
  Country: JP (occurrence: JP)
  Receive Date: 20180824
  Receipt Date: 20180924
  Transmission Date: 20181010
  Serious: Yes (Hospitalization)
  Sender: FDA-Public Use
  Company Number: JP-EISAI MEDICAL RESEARCH-EC-2018-044342

PATIENT
  Sex: Male
  Weight: 60 kg

DRUGS (2)
  1. LENVIMA [Suspect]
     Active Substance: LENVATINIB
     Indication: HEPATOCELLULAR CARCINOMA
     Route: 048
     Dates: start: 20180704, end: 2018
  2. LENVIMA [Suspect]
     Active Substance: LENVATINIB
     Dosage: DOSE WAS ADJUSTED BASED ON PATIENT^S CONDITION: 8MG/DAY FOR 3 DAYS; 4 MG/DAY FOR SEVERAL DAYS; AND 8
     Route: 048
     Dates: start: 2018

REACTIONS (3)
  - Abdominal distension [Recovered/Resolved]
  - Diarrhoea [Recovered/Resolved]
  - Enterocolitis haemorrhagic [Recovered/Resolved]

NARRATIVE: CASE EVENT DATE: 2018
